FAERS Safety Report 22989381 (Version 2)
Quarter: 2023Q4

REPORT INFORMATION
  Report Type: Spontaneous
  Country: US (occurrence: US)
  Receive Date: 20230927
  Receipt Date: 20231009
  Transmission Date: 20240110
  Serious: Yes (Other)
  Sender: FDA-Public Use
  Company Number: US-MLMSERVICE-20191220-2094527-1

PATIENT
  Age: 5 Year
  Sex: Female

DRUGS (8)
  1. TRIAMCINOLONE [Suspect]
     Active Substance: TRIAMCINOLONE
     Indication: Product used for unknown indication
     Dosage: UNK(SUB-TENON?S)
     Route: 065
  2. ATROPINE [Concomitant]
     Active Substance: ATROPINE
     Indication: Product used for unknown indication
     Dosage: UNK
     Route: 065
  3. CEFAZOLIN [Concomitant]
     Active Substance: CEFAZOLIN
     Indication: Product used for unknown indication
     Dosage: UNK
     Route: 057
  4. DEXAMETHASONE [Concomitant]
     Active Substance: DEXAMETHASONE
     Indication: Product used for unknown indication
     Dosage: UNK
     Route: 057
  5. LIDOCAINE [Concomitant]
     Active Substance: LIDOCAINE
     Indication: Anaesthesia
     Dosage: UNK
     Route: 065
  6. DEXAMETHASONE\NEOMYCIN\POLYMYXIN B [Concomitant]
     Active Substance: DEXAMETHASONE\NEOMYCIN\POLYMYXIN B
     Indication: Product used for unknown indication
     Dosage: UNK
     Route: 065
  7. ROPIVACAINE [Concomitant]
     Active Substance: ROPIVACAINE
     Indication: Anaesthesia
     Dosage: UNK
     Route: 065
  8. VORETIGENE NEPARVOVEC [Concomitant]
     Active Substance: VORETIGENE NEPARVOVEC
     Indication: Product used for unknown indication
     Dosage: 0.3 ML (SUBRETINAL INJECTION)
     Route: 031

REACTIONS (1)
  - Ocular hypertension [Recovering/Resolving]
